FAERS Safety Report 9793052 (Version 2)
Quarter: 2014Q1

REPORT INFORMATION
  Report Type: Spontaneous
  Country: IL (occurrence: IL)
  Receive Date: 20140102
  Receipt Date: 20140107
  Transmission Date: 20141002
  Serious: Yes (Death, Life-Threatening, Hospitalization)
  Sender: FDA-Public Use
  Company Number: IL-B.I. PHARMACEUTICALS,INC./RIDGEFIELD-2014-BI-00072RI

PATIENT
  Age: 85 Year
  Sex: Male

DRUGS (2)
  1. PRADAXA [Suspect]
     Indication: ATRIAL FIBRILLATION
     Route: 048
  2. PRADAXA [Suspect]
     Route: 048

REACTIONS (7)
  - Gastrointestinal haemorrhage [Fatal]
  - Anaemia [Fatal]
  - Myocardial infarction [Fatal]
  - Melaena [Fatal]
  - Haematemesis [Fatal]
  - Gastrointestinal haemorrhage [Recovered/Resolved]
  - Renal impairment [Unknown]
